FAERS Safety Report 6832626-X (Version None)
Quarter: 2010Q3

REPORT INFORMATION
  Report Type: 
  Country: None (occurrence: None)
  Receive Date: 20100712
  Receipt Date: 20070426
  Transmission Date: 20110219
  Serious: No
  Sender: FDA-Public Use
  Company Number: US-PFIZER INC-2007020368

PATIENT
  Sex: Female
  Weight: 82.55 kg

DRUGS (3)
  1. CHANTIX [Suspect]
     Indication: NICOTINE DEPENDENCE
     Route: 048
     Dates: start: 20070312
  2. CELEXA [Concomitant]
     Route: 048
  3. DIOVAN HCT [Concomitant]
     Dosage: 160/12.5 MILLIGRAM
     Route: 048

REACTIONS (4)
  - DIZZINESS [None]
  - EAR CONGESTION [None]
  - HEARING IMPAIRED [None]
  - TINNITUS [None]
